FAERS Safety Report 4315154-5 (Version None)
Quarter: 2004Q1

REPORT INFORMATION
  Report Type: 
  Country: None (occurrence: None)
  Receive Date: 20040309
  Receipt Date: 20040224
  Transmission Date: 20041129
  Serious: Yes (Hospitalization, Disabling)
  Sender: FDA-Public Use
  Company Number: 03P-167-0241929-00

PATIENT
  Age: 51 Year
  Sex: Female
  Weight: 54 kg

DRUGS (8)
  1. HUMIRA [Suspect]
     Indication: RHEUMATOID ARTHRITIS
     Dosage: 40 MG, 1 IN 2 WK, SUBCUTANEOUS
     Route: 058
     Dates: start: 20030210, end: 20030901
  2. PREDNISOLONE [Concomitant]
  3. ACETAMINOPHEN [Concomitant]
  4. AMITRIPTYLINE HCL [Concomitant]
  5. HRT [Concomitant]
  6. DIDRONEL [Concomitant]
  7. OMEPRAZOLE [Concomitant]
  8. VITAMIN SUPPLEMENTS [Concomitant]

REACTIONS (1)
  - SUBARACHNOID HAEMORRHAGE [None]
